FAERS Safety Report 6726470-1 (Version None)
Quarter: 2010Q2

REPORT INFORMATION
  Report Type: 
  Country: None (occurrence: None)
  Receive Date: 20100514
  Receipt Date: 20100505
  Transmission Date: 20101027
  Serious: Yes (Hospitalization)
  Sender: FDA-Public Use
  Company Number: MK-AMGEN-KDC407960

PATIENT
  Sex: Male

DRUGS (3)
  1. CINACALCET [Suspect]
     Indication: HYPERPARATHYROIDISM SECONDARY
     Route: 048
     Dates: start: 20100412
  2. CALCIUM CARBONATE [Concomitant]
  3. RANITIDINE [Concomitant]

REACTIONS (2)
  - HYPOCALCAEMIA [None]
  - VIRAL INFECTION [None]
